FAERS Safety Report 14007622 (Version 1)
Quarter: 2017Q3

REPORT INFORMATION
  Report Type: Spontaneous
  Country: US (occurrence: None)
  Receive Date: 20170924
  Receipt Date: 20170924
  Transmission Date: 20171128
  Serious: No
  Sender: FDA-Public Use
  Company Number: None

PATIENT
  Age: 64 Year

DRUGS (1)
  1. AFINITOR [Suspect]
     Active Substance: EVEROLIMUS
     Indication: RENAL CANCER
     Route: 048
     Dates: start: 20170404

REACTIONS (8)
  - Fall [None]
  - Dry mouth [None]
  - Dizziness [None]
  - Heart sounds abnormal [None]
  - Epistaxis [None]
  - Dry eye [None]
  - Balance disorder [None]
  - Eustachian tube disorder [None]
